FAERS Safety Report 17441029 (Version 1)
Quarter: 2020Q1

REPORT INFORMATION
  Report Type: Spontaneous
  Country: NL (occurrence: NL)
  Receive Date: 20200220
  Receipt Date: 20200220
  Transmission Date: 20200409
  Serious: Yes (Hospitalization, Other)
  Sender: FDA-Public Use
  Company Number: NL-LEO PHARMA-328184

PATIENT
  Age: 67 Year
  Sex: Female

DRUGS (1)
  1. PICATO [Suspect]
     Active Substance: INGENOL MEBUTATE
     Indication: ACTINIC KERATOSIS
     Dosage: 1 TUBE PER DAY
     Route: 061
     Dates: start: 20191013, end: 20191015

REACTIONS (3)
  - Application site swelling [Unknown]
  - Squamous cell carcinoma of skin [Recovered/Resolved with Sequelae]
  - Application site inflammation [Unknown]
